FAERS Safety Report 9334200 (Version 2)
Quarter: 2013Q4

REPORT INFORMATION
  Report Type: Spontaneous
  Country: US (occurrence: US)
  Receive Date: 20130606
  Receipt Date: 20131008
  Transmission Date: 20140711
  Serious: No
  Sender: FDA-Public Use
  Company Number: US-AMGEN-USASP2013023252

PATIENT
  Age: 86 Year
  Sex: Female
  Weight: 52.6 kg

DRUGS (4)
  1. PROLIA [Suspect]
     Indication: OSTEOPOROSIS POSTMENOPAUSAL
     Dosage: UNK
     Dates: start: 2012, end: 2012
  2. SPIRIVA [Concomitant]
  3. SYMBICORT [Concomitant]
  4. ANTIHYPERTENSIVES [Concomitant]

REACTIONS (5)
  - Neck pain [Not Recovered/Not Resolved]
  - Hypokinesia [Recovered/Resolved]
  - Musculoskeletal stiffness [Recovered/Resolved]
  - Musculoskeletal pain [Recovered/Resolved]
  - Arthralgia [Recovered/Resolved]
